FAERS Safety Report 9426723 (Version 1)
Quarter: 2013Q3

REPORT INFORMATION
  Report Type: Spontaneous
  Country: US (occurrence: US)
  Receive Date: 20130730
  Receipt Date: 20130730
  Transmission Date: 20140515
  Serious: No
  Sender: FDA-Public Use
  Company Number: US-SANOFI-AVENTIS-2012SA085527

PATIENT
  Age: 37 Year
  Sex: Female

DRUGS (1)
  1. AMBIEN [Suspect]
     Indication: INSOMNIA
     Route: 048

REACTIONS (18)
  - Cold sweat [Unknown]
  - Feeling abnormal [Unknown]
  - Hot flush [Unknown]
  - Sleep terror [Unknown]
  - Hangover [Unknown]
  - Headache [Unknown]
  - Night sweats [Unknown]
  - Dyspnoea [Unknown]
  - Tremor [Not Recovered/Not Resolved]
  - Pyrexia [Unknown]
  - Anxiety [Unknown]
  - Drug ineffective [Unknown]
  - Expired drug administered [Unknown]
  - Palpitations [Unknown]
  - Wrong technique in drug usage process [Unknown]
  - Nausea [Unknown]
  - Vertigo [Unknown]
  - Tinnitus [Unknown]
